FAERS Safety Report 9014492 (Version 2)
Quarter: 2013Q3

REPORT INFORMATION
  Report Type: Report from Study
  Country: DE (occurrence: DE)
  Receive Date: 20130115
  Receipt Date: 20130807
  Transmission Date: 20140515
  Serious: Yes (Hospitalization)
  Sender: FDA-Public Use
  Company Number: DE-AMGEN-DEUCT2013002677

PATIENT
  Age: 47 Year
  Sex: Male

DRUGS (3)
  1. ETANERCEPT [Suspect]
     Indication: PRODUCT USED FOR UNKNOWN INDICATION
     Dosage: 50 MG, WEEKLY
     Route: 065
  2. METHOTREXATE SODIUM [Concomitant]
     Dosage: 5 MG, WEEKLY
     Route: 065
  3. DEKRISTOL [Concomitant]
     Dosage: UNK

REACTIONS (1)
  - Retinal detachment [Recovered/Resolved]
